FAERS Safety Report 17545126 (Version 1)
Quarter: 2020Q1

REPORT INFORMATION
  Report Type: Spontaneous
  Country: US (occurrence: US)
  Receive Date: 20200313
  Receipt Date: 20200313
  Transmission Date: 20200409
  Serious: Yes (Death)
  Sender: FDA-Public Use
  Company Number: None

PATIENT
  Age: 83 Year
  Sex: Male
  Weight: 59 kg

DRUGS (2)
  1. PLASBUMIN-25 [Suspect]
     Active Substance: ALBUMIN HUMAN
     Indication: HYPOVOLAEMIA
     Dosage: ?          QUANTITY:1 IV;OTHER FREQUENCY:ONE DOSE;?
     Dates: start: 20190313, end: 20190313
  2. BISACODYL. [Suspect]
     Active Substance: BISACODYL
     Indication: PRODUCT USED FOR UNKNOWN INDICATION
     Dosage: ?          QUANTITY:1 SUPPOSITORY(IES);OTHER ROUTE:SUPPOSITORY?

REACTIONS (2)
  - Diarrhoea [None]
  - Haemodialysis [None]

NARRATIVE: CASE EVENT DATE: 20190313
